FAERS Safety Report 25940967 (Version 1)
Quarter: 2025Q4

REPORT INFORMATION
  Report Type: Spontaneous
  Country: US (occurrence: None)
  Receive Date: 20251018
  Receipt Date: 20251018
  Transmission Date: 20260118
  Serious: Yes (Other)
  Sender: FDA-CTU
  Company Number: None

PATIENT
  Age: 68 Year
  Sex: Female
  Weight: 57.6 kg

DRUGS (10)
  1. DUPIXENT [Suspect]
     Active Substance: DUPILUMAB
     Indication: Chronic obstructive pulmonary disease
     Dosage: OTHER QUANTITY : 1 INJECTION(S);?OTHER FREQUENCY : EVERY 2 WEEKS;?
     Route: 058
     Dates: start: 20241125, end: 20250915
  2. Trellegy Elipta 100mg once/day [Concomitant]
  3. azalastine BID [Concomitant]
  4. atrovent nasal spray BID [Concomitant]
  5. midodrine 5mg/day [Concomitant]
  6. famotidine 20gm/ day [Concomitant]
  7. fexofenadine 20mg/day [Concomitant]
  8. oxygen for sleep [Concomitant]
  9. elevation + exertion [Concomitant]
  10. Allreds supplement [Concomitant]

REACTIONS (10)
  - Arthralgia [None]
  - Pain in extremity [None]
  - Pain in extremity [None]
  - Pain in extremity [None]
  - Pain in extremity [None]
  - Pain in extremity [None]
  - Arthralgia [None]
  - Muscular weakness [None]
  - Pain [None]
  - Inflammation [None]

NARRATIVE: CASE EVENT DATE: 20250915
